FAERS Safety Report 5279399-2 (Version None)
Quarter: 2007Q1

REPORT INFORMATION
  Report Type: 
  Country: None (occurrence: None)
  Receive Date: 20061213
  Receipt Date: 20060612
  Transmission Date: 20070707
  Serious: Yes (Hospitalization)
  Sender: FDA-Public Use
  Company Number: 2006UW12487

PATIENT
  Age: 74 Year
  Sex: Male
  Weight: 86.182 kg

DRUGS (16)
  1. SEROQUEL [Suspect]
     Indication: AGGRESSION
     Dosage: 100 MG TO 150 MG
     Dates: start: 20050101
  2. SEROQUEL [Suspect]
     Indication: AGITATION
     Dosage: 100 MG TO 150 MG
     Dates: start: 20050101
  3. SEROQUEL [Suspect]
     Indication: NIGHTMARE
     Dosage: 100 MG TO 150 MG
     Dates: start: 20050101
  4. SEROQUEL [Suspect]
     Indication: AGGRESSION
     Dosage: 75 MG DAILY PO
     Route: 048
  5. SEROQUEL [Suspect]
     Indication: AGITATION
     Dosage: 75 MG DAILY PO
     Route: 048
  6. SEROQUEL [Suspect]
     Indication: NIGHTMARE
     Dosage: 75 MG DAILY PO
     Route: 048
  7. CLONAZEPAM [Concomitant]
  8. HALDOL [Concomitant]
  9. ZOCOR [Concomitant]
  10. OMEPRAZOLE [Concomitant]
  11. EXELON [Concomitant]
  12. M.V.I. [Concomitant]
  13. VITAMIN E [Concomitant]
  14. ASCORBIC ACID [Concomitant]
  15. VITAMIN B COMPLEX CAP [Concomitant]
  16. FOLIC ACID [Concomitant]

REACTIONS (4)
  - AGGRESSION [None]
  - BLOOD PRESSURE INCREASED [None]
  - PARKINSONISM [None]
  - WEIGHT INCREASED [None]
